FAERS Safety Report 6539870-X (Version None)
Quarter: 2010Q1

REPORT INFORMATION
  Report Type: 
  Country: None (occurrence: None)
  Receive Date: 20100115
  Receipt Date: 20100112
  Transmission Date: 20100710
  Serious: Yes (Hospitalization)
  Sender: FDA-Public Use
  Company Number: FR-WYE-G05317310

PATIENT
  Age: 3 Year
  Sex: Male

DRUGS (1)
  1. ADVIL LIQUI-GELS [Suspect]
     Dosage: FROM UNSPECIFIED DATE TO UNSPECIFIED DATE THEN FROM DEC-2009 TO DEC-2009
     Route: 048

REACTIONS (2)
  - FACE OEDEMA [None]
  - PYREXIA [None]
